FAERS Safety Report 5005681-X (Version None)
Quarter: 2006Q2

REPORT INFORMATION
  Report Type: 
  Country: None (occurrence: None)
  Receive Date: 20060517
  Receipt Date: 20060517
  Transmission Date: 20061013
  Serious: No
  Sender: FDA-Public Use
  Company Number: None

PATIENT
  Age: 70 Year
  Sex: Male

DRUGS (1)
  1. MARCAINE [Suspect]
     Indication: ANAESTHESIA
     Dosage: 2ML  ONCE

REACTIONS (1)
  - DRUG INEFFECTIVE [None]
